FAERS Safety Report 25706669 (Version 1)
Quarter: 2025Q3

REPORT INFORMATION
  Report Type: Spontaneous
  Country: US (occurrence: US)
  Receive Date: 20250820
  Receipt Date: 20250820
  Transmission Date: 20251021
  Serious: Yes (Other)
  Sender: AMGEN
  Company Number: US-AMGEN-USASP2025161084

PATIENT
  Age: 59 Year
  Sex: Female

DRUGS (36)
  1. REPATHA [Suspect]
     Active Substance: EVOLOCUMAB
     Indication: Product used for unknown indication
     Dosage: 140 MILLIGRAM PER MILLILITRE, Q2WK
     Route: 058
  2. PREDNISONE [Suspect]
     Active Substance: PREDNISONE
     Indication: Product used for unknown indication
     Dosage: 60 MILLIGRAM, QD
     Route: 065
     Dates: start: 20170506
  3. PREDNISONE [Suspect]
     Active Substance: PREDNISONE
     Dosage: 50 MILLIGRAM, QD
     Route: 065
     Dates: start: 20170724
  4. PREDNISONE [Suspect]
     Active Substance: PREDNISONE
     Dosage: 40 MILLIGRAM, QD
     Route: 065
     Dates: start: 20170814
  5. PREDNISONE [Suspect]
     Active Substance: PREDNISONE
     Dosage: 35 MILLIGRAM, QD
     Route: 065
     Dates: start: 20170913
  6. PREDNISONE [Suspect]
     Active Substance: PREDNISONE
     Dosage: 30 MILLIGRAM, QD
     Route: 065
     Dates: start: 20171002
  7. PREDNISONE [Suspect]
     Active Substance: PREDNISONE
     Dosage: 30 MILLIGRAM, QD
     Route: 065
     Dates: start: 20171016
  8. PREDNISONE [Suspect]
     Active Substance: PREDNISONE
     Dosage: 30 MILLIGRAM, QD
     Route: 065
     Dates: start: 20171105
  9. PREDNISONE [Suspect]
     Active Substance: PREDNISONE
     Dosage: 30 MILLIGRAM, QD
     Route: 065
     Dates: start: 20171126
  10. PREDNISONE [Suspect]
     Active Substance: PREDNISONE
     Dosage: 30 MILLIGRAM, QD
     Route: 065
     Dates: start: 20171217
  11. PREDNISONE [Suspect]
     Active Substance: PREDNISONE
     Dosage: 30 MILLIGRAM, QD
     Route: 065
     Dates: start: 20171217
  12. PREDNISONE [Suspect]
     Active Substance: PREDNISONE
     Dosage: 30 MILLIGRAM, QD
     Route: 065
     Dates: start: 20180103
  13. PREDNISONE [Suspect]
     Active Substance: PREDNISONE
     Dosage: 30 MILLIGRAM, QD
     Route: 065
     Dates: start: 20180511
  14. PREDNISONE [Suspect]
     Active Substance: PREDNISONE
     Dosage: 30 MILLIGRAM, QD
     Route: 065
  15. PREDNISONE [Suspect]
     Active Substance: PREDNISONE
     Dosage: 30 MILLIGRAM, QD
     Route: 065
     Dates: start: 201809
  16. PREDNISONE [Suspect]
     Active Substance: PREDNISONE
     Dosage: 30 MILLIGRAM, QD
     Route: 065
     Dates: start: 20181102
  17. COVID-19 vaccine [Concomitant]
  18. PAXLOVID [Concomitant]
     Active Substance: NIRMATRELVIR\RITONAVIR
  19. ZYRTEC [Concomitant]
     Active Substance: CETIRIZINE HYDROCHLORIDE
  20. METOPROLOL SUCCINATE [Concomitant]
     Active Substance: METOPROLOL SUCCINATE
  21. METFORMIN [Concomitant]
     Active Substance: METFORMIN HYDROCHLORIDE
     Route: 048
  22. BLISOVI 24 FE [Concomitant]
     Active Substance: ETHINYL ESTRADIOL\NORETHINDRONE ACETATE
     Dosage: 75 MILLIGRAM, QD
     Route: 048
  23. SPIRONOLACTONE [Concomitant]
     Active Substance: SPIRONOLACTONE
     Dosage: 25 MILLIGRAM, QD
     Route: 048
  24. DRISDOL [Concomitant]
     Active Substance: ERGOCALCIFEROL
     Dates: start: 20180224
  25. FARXIGA [Concomitant]
     Active Substance: DAPAGLIFLOZIN PROPANEDIOL
     Dosage: 5 MILLIGRAM, QD
     Route: 048
  26. MELOXICAM [Concomitant]
     Active Substance: MELOXICAM
     Dosage: 15 MILLIGRAM, QD
     Route: 048
     Dates: start: 20181024
  27. LEUCOVORIN CALCIUM [Concomitant]
     Active Substance: LEUCOVORIN CALCIUM
     Route: 048
  28. MOUNJARO [Concomitant]
     Active Substance: TIRZEPATIDE
     Route: 058
  29. ZETIA [Concomitant]
     Active Substance: EZETIMIBE
     Route: 048
  30. METHOTREXATE SODIUM [Concomitant]
     Active Substance: METHOTREXATE SODIUM
  31. FOLIC ACID [Concomitant]
     Active Substance: FOLIC ACID
     Dosage: 1 MILLIGRAM, QD
     Route: 048
  32. FAMOTIDINE [Concomitant]
     Active Substance: FAMOTIDINE
     Dates: start: 20250425
  33. VITAMIN D2 [Concomitant]
     Active Substance: ERGOCALCIFEROL
  34. PANTOPRAZOLE [Concomitant]
     Active Substance: PANTOPRAZOLE
     Dosage: 40 MILLIGRAM, QD
  35. TYLENOL [Concomitant]
     Active Substance: ACETAMINOPHEN
  36. CALCIUM\VITAMIN D [Concomitant]
     Active Substance: CALCIUM\VITAMIN D

REACTIONS (6)
  - Seronegative arthritis [Unknown]
  - COVID-19 [Unknown]
  - Weight decreased [Unknown]
  - Myopathy [Unknown]
  - Myositis [Unknown]
  - Osteoporosis [Unknown]

NARRATIVE: CASE EVENT DATE: 20170513
